FAERS Safety Report 8139920-3 (Version None)
Quarter: 2012Q1

REPORT INFORMATION
  Report Type: 
  Country: None (occurrence: None)
  Receive Date: 20120215
  Receipt Date: 20120206
  Transmission Date: 20120608
  Serious: Yes (Hospitalization)
  Sender: FDA-Public Use
  Company Number: US-ASTRAZENECA-2011SE78958

PATIENT
  Age: 77 Year
  Sex: Female
  Weight: 54.4 kg

DRUGS (5)
  1. REGLAN [Concomitant]
     Indication: GASTROINTESTINAL DISORDER
  2. SYMBICORT [Suspect]
     Indication: ASTHMA
     Dosage: 160/4.5 2 PUFF BID
     Route: 055
     Dates: start: 20060101
  3. SYMBICORT [Suspect]
     Dosage: SOMETIMES TAKING ONLY 1 PUFF IN THE MORNING AND TWO PUFFS IN THE EVENING
     Route: 055
  4. PRILOSEC [Suspect]
     Indication: DYSPEPSIA
     Route: 048
  5. MULTI-VITAMINS [Concomitant]

REACTIONS (3)
  - INCORRECT DOSE ADMINISTERED [None]
  - OFF LABEL USE [None]
  - DRUG DOSE OMISSION [None]
